FAERS Safety Report 5286637-9 (Version None)
Quarter: 2007Q2

REPORT INFORMATION
  Report Type: 
  Country: None (occurrence: None)
  Receive Date: 20070404
  Receipt Date: 20070328
  Transmission Date: 20071010
  Serious: Yes (Life-Threatening, Hospitalization, Other)
  Sender: FDA-Public Use
  Company Number: GB-GLAXOSMITHKLINE-B0464500A

PATIENT
  Age: 45 Year
  Sex: Female

DRUGS (3)
  1. LAMICTAL [Suspect]
     Route: 048
     Dates: end: 20070301
  2. EPILIM [Concomitant]
     Dosage: 200MG UNKNOWN
     Route: 048
  3. VALPROATE SODIUM [Concomitant]
     Dosage: 2000MG UNKNOWN
     Route: 048

REACTIONS (3)
  - ANAEMIA [None]
  - LEUKOPENIA [None]
  - THROMBOCYTOPENIA [None]
